FAERS Safety Report 13154540 (Version 1)
Quarter: 2017Q1

REPORT INFORMATION
  Report Type: Spontaneous
  Country: US (occurrence: US)
  Receive Date: 20170126
  Receipt Date: 20170126
  Transmission Date: 20170428
  Serious: No
  Sender: FDA-Public Use
  Company Number: US-AMGEN-USASP2016175301

PATIENT
  Sex: Female

DRUGS (2)
  1. KYPROLIS [Suspect]
     Active Substance: CARFILZOMIB
     Dosage: 20 MG/M2, ON DAY 15 AND 16
     Route: 065
     Dates: start: 20161208
  2. KYPROLIS [Suspect]
     Active Substance: CARFILZOMIB
     Indication: DISEASE PROGRESSION
     Dosage: 20 MG/M2, ON DAY1, 2, 8 AND 9
     Route: 065
     Dates: start: 20161124

REACTIONS (1)
  - Dyspnoea [Recovered/Resolved]

NARRATIVE: CASE EVENT DATE: 20161202
